FAERS Safety Report 10187531 (Version 1)
Quarter: 2014Q2

REPORT INFORMATION
  Report Type: Spontaneous
  Country: US (occurrence: US)
  Receive Date: 20140522
  Receipt Date: 20140522
  Transmission Date: 20141212
  Serious: No
  Sender: FDA-Public Use
  Company Number: US-SANOFI-AVENTIS-2013SA075771

PATIENT
  Age: 62 Year
  Sex: Male
  Weight: 117.9 kg

DRUGS (6)
  1. SOLOSTAR [Suspect]
     Indication: TYPE 2 DIABETES MELLITUS
     Dates: start: 2013
  2. LANTUS SOLOSTAR [Suspect]
     Indication: TYPE 2 DIABETES MELLITUS
     Dosage: DOSE:30 UNIT(S)
     Route: 051
     Dates: start: 2013
  3. METFORMIN [Concomitant]
     Indication: TYPE 2 DIABETES MELLITUS
     Route: 065
  4. LAMISIL [Concomitant]
     Indication: TYPE 2 DIABETES MELLITUS
     Route: 065
  5. LIPITOR [Concomitant]
     Indication: TYPE 2 DIABETES MELLITUS
     Route: 065
  6. DRUG USED IN DIABETES [Concomitant]
     Indication: TYPE 2 DIABETES MELLITUS
     Route: 065

REACTIONS (3)
  - Blood glucose increased [Unknown]
  - Underdose [Unknown]
  - Injury associated with device [Unknown]
